FAERS Safety Report 8006999-9 (Version None)
Quarter: 2011Q4

REPORT INFORMATION
  Report Type: 
  Country: None (occurrence: None)
  Receive Date: 20111227
  Receipt Date: 20111219
  Transmission Date: 20120403
  Serious: Yes (Hospitalization)
  Sender: FDA-Public Use
  Company Number: US-B.I. PHARMACEUTICALS,INC./RIDGEFIELD-2011-BP-25381BP

PATIENT
  Sex: Male

DRUGS (6)
  1. AMIODARONE [Concomitant]
     Dosage: 1200 MG
     Dates: start: 20110801
  2. AMIODARONE [Concomitant]
     Dosage: 100 MG
     Dates: start: 20110701
  3. PRADAXA [Suspect]
     Indication: TRANSIENT ISCHAEMIC ATTACK
     Dosage: 300 MG
     Route: 048
     Dates: start: 20110101, end: 20110430
  4. PRADAXA [Suspect]
     Indication: ATRIAL FIBRILLATION
     Dosage: 300 MG
     Route: 048
     Dates: start: 20110601
  5. VITAMIN D [Concomitant]
     Indication: HYPOVITAMINOSIS
     Dosage: 50000 U
     Dates: start: 20111014
  6. AMIODARONE [Concomitant]
     Indication: ATRIAL FIBRILLATION
     Dosage: 300 MG
     Dates: start: 20110601

REACTIONS (7)
  - SYNCOPE [None]
  - CARDIAC ABLATION [None]
  - DYSPNOEA [None]
  - ATRIAL FIBRILLATION [None]
  - DIZZINESS [None]
  - CARDIOVERSION [None]
  - CHEST DISCOMFORT [None]
